FAERS Safety Report 8984583 (Version 1)
Quarter: 2012Q4

REPORT INFORMATION
  Report Type: 
  Country: BR (occurrence: BR)
  Receive Date: 20121225
  Receipt Date: 20121225
  Transmission Date: 20130627
  Serious: Yes (Other)
  Sender: FDA-Public Use
  Company Number: BR-SANOFI-AVENTIS-2012SA015546

PATIENT
  Sex: Female
  Weight: 52 kg

DRUGS (1)
  1. CLEXANE [Suspect]
     Indication: DRUG USE FOR UNKNOWN INDICATION
     Dosage: form: syringe
     Route: 065

REACTIONS (3)
  - Placental disorder [Unknown]
  - Foetal malnutrition [Unknown]
  - Exposure during pregnancy [Unknown]
